FAERS Safety Report 6694439-1 (Version None)
Quarter: 2010Q2

REPORT INFORMATION
  Report Type: 
  Country: None (occurrence: None)
  Receive Date: 20100423
  Receipt Date: 20100419
  Transmission Date: 20101027
  Serious: Yes (Hospitalization)
  Sender: FDA-Public Use
  Company Number: FR-ASTRAZENECA-2010SE07521

PATIENT
  Age: 77 Year
  Sex: Female

DRUGS (9)
  1. NEXIUM [Suspect]
     Route: 048
     Dates: start: 20100104, end: 20100106
  2. DAFALGAN [Suspect]
     Dates: start: 20100104, end: 20100106
  3. SPASFON [Suspect]
     Dates: start: 20100104, end: 20100106
  4. DIPRIVAN [Concomitant]
  5. FENTANYL [Concomitant]
  6. KETAMINE [Concomitant]
  7. CEFAZOLIN [Concomitant]
  8. ACUPAN [Concomitant]
  9. LEVOTHYROX [Concomitant]

REACTIONS (3)
  - CHOLESTASIS [None]
  - CYTOLYTIC HEPATITIS [None]
  - DERMATITIS EXFOLIATIVE [None]
